FAERS Safety Report 25407063 (Version 1)
Quarter: 2025Q2

REPORT INFORMATION
  Report Type: Spontaneous
  Country: US (occurrence: US)
  Receive Date: 20250606
  Receipt Date: 20250606
  Transmission Date: 20250716
  Serious: Yes (Other)
  Sender: DR REDDYS
  Company Number: US-DRL-USA-USA/2025/06/008082

PATIENT
  Age: 68 Year
  Sex: Male

DRUGS (52)
  1. GEMCITABINE [Suspect]
     Active Substance: GEMCITABINE
     Indication: Adenocarcinoma gastric
     Dates: start: 20230111
  2. GEMCITABINE [Suspect]
     Active Substance: GEMCITABINE
     Dates: start: 20230209
  3. GEMCITABINE [Suspect]
     Active Substance: GEMCITABINE
     Dates: start: 20230308
  4. GEMCITABINE [Suspect]
     Active Substance: GEMCITABINE
     Dates: start: 20230405
  5. GEMCITABINE [Suspect]
     Active Substance: GEMCITABINE
     Dates: start: 20230412
  6. GEMCITABINE [Suspect]
     Active Substance: GEMCITABINE
     Dates: start: 20230426
  7. GEMCITABINE [Suspect]
     Active Substance: GEMCITABINE
     Dates: start: 20230516
  8. GEMCITABINE [Suspect]
     Active Substance: GEMCITABINE
     Dates: start: 20230609
  9. GEMCITABINE [Suspect]
     Active Substance: GEMCITABINE
     Dates: start: 20230622
  10. GEMCITABINE [Suspect]
     Active Substance: GEMCITABINE
     Dates: start: 20230719
  11. GEMCITABINE [Suspect]
     Active Substance: GEMCITABINE
     Dates: start: 20230802
  12. GEMCITABINE [Suspect]
     Active Substance: GEMCITABINE
     Dates: start: 20230816
  13. GEMCITABINE [Suspect]
     Active Substance: GEMCITABINE
     Dates: start: 20230830
  14. GEMCITABINE [Suspect]
     Active Substance: GEMCITABINE
     Dates: start: 20230913
  15. DURVALUMAB [Suspect]
     Active Substance: DURVALUMAB
     Indication: Adenocarcinoma gastric
     Dates: start: 20230111
  16. DURVALUMAB [Suspect]
     Active Substance: DURVALUMAB
     Dates: start: 20230209
  17. DURVALUMAB [Suspect]
     Active Substance: DURVALUMAB
     Dates: start: 20230308
  18. DURVALUMAB [Suspect]
     Active Substance: DURVALUMAB
     Dates: start: 20230405
  19. DURVALUMAB [Suspect]
     Active Substance: DURVALUMAB
     Dates: start: 20230426
  20. DURVALUMAB [Suspect]
     Active Substance: DURVALUMAB
     Dates: start: 20230516
  21. DURVALUMAB [Suspect]
     Active Substance: DURVALUMAB
     Dates: start: 20230622
  22. DURVALUMAB [Suspect]
     Active Substance: DURVALUMAB
     Dates: start: 20230705
  23. DURVALUMAB [Suspect]
     Active Substance: DURVALUMAB
     Dates: start: 20230719
  24. DURVALUMAB [Suspect]
     Active Substance: DURVALUMAB
     Dates: start: 20230802
  25. DURVALUMAB [Suspect]
     Active Substance: DURVALUMAB
     Dates: start: 20230816
  26. DURVALUMAB [Suspect]
     Active Substance: DURVALUMAB
     Dates: start: 20230913
  27. TRASTUZUMAB [Suspect]
     Active Substance: TRASTUZUMAB
     Indication: Adenocarcinoma gastric
     Dates: start: 20230111
  28. TRASTUZUMAB [Suspect]
     Active Substance: TRASTUZUMAB
     Dates: start: 20230209
  29. TRASTUZUMAB [Suspect]
     Active Substance: TRASTUZUMAB
     Dates: start: 20230308
  30. TRASTUZUMAB [Suspect]
     Active Substance: TRASTUZUMAB
     Dates: start: 20230405
  31. TRASTUZUMAB [Suspect]
     Active Substance: TRASTUZUMAB
     Dates: start: 20230426
  32. TRASTUZUMAB [Suspect]
     Active Substance: TRASTUZUMAB
     Dates: start: 20230516
  33. TRASTUZUMAB [Suspect]
     Active Substance: TRASTUZUMAB
     Dates: start: 20230622
  34. TRASTUZUMAB [Suspect]
     Active Substance: TRASTUZUMAB
     Dates: start: 20230705
  35. TRASTUZUMAB [Suspect]
     Active Substance: TRASTUZUMAB
     Dates: start: 20230719
  36. TRASTUZUMAB [Suspect]
     Active Substance: TRASTUZUMAB
     Dates: start: 20230802
  37. TRASTUZUMAB [Suspect]
     Active Substance: TRASTUZUMAB
     Dates: start: 20230816
  38. TRASTUZUMAB [Suspect]
     Active Substance: TRASTUZUMAB
     Dates: start: 20230913
  39. CISPLATIN [Suspect]
     Active Substance: CISPLATIN
     Indication: Adenocarcinoma gastric
     Dates: start: 20230111
  40. CISPLATIN [Suspect]
     Active Substance: CISPLATIN
     Dates: start: 20230209
  41. CISPLATIN [Suspect]
     Active Substance: CISPLATIN
     Dates: start: 20230308
  42. CISPLATIN [Suspect]
     Active Substance: CISPLATIN
     Dates: start: 20230405
  43. CISPLATIN [Suspect]
     Active Substance: CISPLATIN
     Dates: start: 20230412
  44. CISPLATIN [Suspect]
     Active Substance: CISPLATIN
     Dates: start: 20230426
  45. CISPLATIN [Suspect]
     Active Substance: CISPLATIN
     Dates: start: 20230516
  46. CISPLATIN [Suspect]
     Active Substance: CISPLATIN
     Dates: start: 20230609
  47. CISPLATIN [Suspect]
     Active Substance: CISPLATIN
     Dates: start: 20230622
  48. CISPLATIN [Suspect]
     Active Substance: CISPLATIN
     Dates: start: 20230719
  49. CISPLATIN [Suspect]
     Active Substance: CISPLATIN
     Dates: start: 20230802
  50. CISPLATIN [Suspect]
     Active Substance: CISPLATIN
     Dates: start: 20230816
  51. CISPLATIN [Suspect]
     Active Substance: CISPLATIN
     Dates: start: 20230830
  52. CISPLATIN [Suspect]
     Active Substance: CISPLATIN
     Dates: start: 20230913

REACTIONS (1)
  - Thrombocytopenia [Unknown]
